FAERS Safety Report 21495423 (Version 2)
Quarter: 2022Q4

REPORT INFORMATION
  Report Type: Report from Study
  Country: US (occurrence: US)
  Receive Date: 20221022
  Receipt Date: 20221102
  Transmission Date: 20230113
  Serious: No
  Sender: FDA-Public Use
  Company Number: US-ABBVIE-4152392

PATIENT
  Age: 60 Year
  Sex: Female

DRUGS (1)
  1. IMBRUVICA [Suspect]
     Active Substance: IBRUTINIB
     Indication: Waldenstrom^s macroglobulinaemia
     Route: 048

REACTIONS (7)
  - Incorrect dose administered [Unknown]
  - Back disorder [Unknown]
  - Energy increased [Unknown]
  - Blood test abnormal [Unknown]
  - COVID-19 [Unknown]
  - Hypoaesthesia [Unknown]
  - Back pain [Unknown]

NARRATIVE: CASE EVENT DATE: 20220923
